FAERS Safety Report 6013522-7 (Version None)
Quarter: 2008Q4

REPORT INFORMATION
  Report Type: 
  Country: None (occurrence: None)
  Receive Date: 20081219
  Receipt Date: 20081210
  Transmission Date: 20090506
  Serious: Yes (Other)
  Sender: FDA-Public Use
  Company Number: PHHY2008TW23241

PATIENT
  Age: 92 Year
  Sex: Female

DRUGS (2)
  1. ZOMETA [Suspect]
     Indication: METASTASES TO BONE
     Dosage: 3.2 MG/MONTH
     Dates: start: 20080801
  2. ZOMETA [Suspect]
     Dosage: UNK
     Dates: start: 20081101

REACTIONS (3)
  - ATRIAL FIBRILLATION [None]
  - CARDIAC DISCOMFORT [None]
  - CONDITION AGGRAVATED [None]
